FAERS Safety Report 5703756-0 (Version None)
Quarter: 2008Q2

REPORT INFORMATION
  Report Type: 
  Country: None (occurrence: None)
  Receive Date: 20080413
  Receipt Date: 20080404
  Transmission Date: 20081010
  Serious: Yes (Hospitalization)
  Sender: FDA-Public Use
  Company Number: PHRM2008FR01219

PATIENT
  Age: 58 Year
  Sex: Female

DRUGS (2)
  1. ZOMETA [Suspect]
     Dosage: 1 DF, QMO
     Route: 042
     Dates: start: 20030101, end: 20060912
  2. FOSAMAX [Suspect]
     Dosage: 1 DF, QW
     Route: 065
     Dates: start: 20030101, end: 20061222

REACTIONS (3)
  - JAW DISORDER [None]
  - OSTEONECROSIS [None]
  - TOOTH EXTRACTION [None]
